FAERS Safety Report 9082754 (Version 2)
Quarter: 2014Q2

REPORT INFORMATION
  Report Type: Report from Study
  Country: MX (occurrence: MX)
  Receive Date: 20130130
  Receipt Date: 20140515
  Transmission Date: 20141212
  Serious: Yes (Death, Hospitalization, Other)
  Sender: FDA-Public Use
  Company Number: PHHY2013MX008183

PATIENT
  Age: 79 Year
  Sex: Female

DRUGS (2)
  1. EXFORGE HCT [Suspect]
     Indication: HYPERTENSION
     Dosage: 1 DF, (320/10/25 MG) DAILY
     Route: 048
     Dates: start: 20120811, end: 201212
  2. EXFORGE HCT [Suspect]
     Dosage: 1 DF, (320/10/25 MG) DAILY
     Route: 048
     Dates: end: 201306

REACTIONS (14)
  - Myocardial infarction [Fatal]
  - Pneumonia [Recovered/Resolved]
  - Cough [Recovered/Resolved]
  - Pyrexia [Recovered/Resolved]
  - Cardiomegaly [Unknown]
  - Diabetes mellitus [Unknown]
  - Pulmonary oedema [Unknown]
  - Gastrointestinal disorder [Recovered/Resolved]
  - Colitis [Unknown]
  - Influenza [Recovered/Resolved]
  - Blood glucose fluctuation [Unknown]
  - Gastritis [Unknown]
  - Asthenia [Unknown]
  - Blood pressure abnormal [Unknown]
